FAERS Safety Report 20071277 (Version 2)
Quarter: 2021Q4

REPORT INFORMATION
  Report Type: Report from Study
  Country: MX (occurrence: MX)
  Receive Date: 20211115
  Receipt Date: 20211124
  Transmission Date: 20220303
  Serious: Yes (Death, Other)
  Sender: FDA-Public Use
  Company Number: MX-NOVARTISPH-NVSC2021MX260415

PATIENT
  Age: 45 Year
  Sex: Male
  Weight: 65 kg

DRUGS (1)
  1. VOTRIENT [Suspect]
     Active Substance: PAZOPANIB HYDROCHLORIDE
     Indication: Renal cancer
     Dosage: 2 DF, BID (200 MG)
     Route: 048
     Dates: start: 202109, end: 202110

REACTIONS (10)
  - Death [Fatal]
  - Hepatic neoplasm [Unknown]
  - Renal neoplasm [Unknown]
  - Fall [Unknown]
  - Injury [Unknown]
  - Gastritis [Unknown]
  - Flatulence [Unknown]
  - Peripheral swelling [Unknown]
  - Fluid retention [Unknown]
  - Product use issue [Unknown]

NARRATIVE: CASE EVENT DATE: 20210901
